FAERS Safety Report 16931256 (Version 3)
Quarter: 2020Q1

REPORT INFORMATION
  Report Type: Spontaneous
  Country: FR (occurrence: FR)
  Receive Date: 20191017
  Receipt Date: 20200302
  Transmission Date: 20200409
  Serious: Yes (Death, Other)
  Sender: FDA-Public Use
  Company Number: FR-GILEAD-2019-0430472

PATIENT
  Age: 58 Year
  Sex: Male
  Weight: 82.6 kg

DRUGS (3)
  1. ENDOXAN [CYCLOPHOSPHAMIDE] [Concomitant]
     Active Substance: CYCLOPHOSPHAMIDE
  2. FLUDARABINE [Concomitant]
     Active Substance: FLUDARABINE PHOSPHATE
  3. YESCARTA [Suspect]
     Active Substance: AXICABTAGENE CILOLEUCEL
     Indication: DIFFUSE LARGE B-CELL LYMPHOMA
     Dosage: UNK
     Route: 042
     Dates: start: 20190708, end: 20190708

REACTIONS (5)
  - Treatment failure [Not Recovered/Not Resolved]
  - Cytopenia [Unknown]
  - Diffuse large B-cell lymphoma [Fatal]
  - Acute myeloid leukaemia [Unknown]
  - Acute leukaemia [Unknown]

NARRATIVE: CASE EVENT DATE: 201909
